FAERS Safety Report 10160196 (Version 1)
Quarter: 2014Q2

REPORT INFORMATION
  Report Type: Report from Study
  Country: BR (occurrence: BR)
  Receive Date: 20140508
  Receipt Date: 20140508
  Transmission Date: 20141212
  Serious: Yes (Death, Hospitalization)
  Sender: FDA-Public Use
  Company Number: PHHY2014BR055524

PATIENT
  Sex: Male
  Weight: 120 kg

DRUGS (2)
  1. DIOVAN AMLO FIX [Suspect]
     Indication: HYPERTENSION
     Dosage: 1 DF (VALS 80MG, AMLO 5MG) QD
     Route: 048
  2. DIOVAN AMLO FIX [Suspect]
     Indication: CARDIAC DISORDER

REACTIONS (2)
  - Ascites [Fatal]
  - Hepatic cirrhosis [Fatal]
